FAERS Safety Report 7184742-3 (Version None)
Quarter: 2010Q4

REPORT INFORMATION
  Report Type: 
  Country: None (occurrence: None)
  Receive Date: 20101222
  Receipt Date: 20101220
  Transmission Date: 20110411
  Serious: Yes (Other)
  Sender: FDA-Public Use
  Company Number: US-PFIZER INC-2010176010

PATIENT
  Sex: Male
  Weight: 111 kg

DRUGS (8)
  1. ZOSYN [Suspect]
     Indication: BACTERAEMIA
     Dosage: 3.375 G, EVERY 12 HRS
     Route: 042
     Dates: start: 20101206, end: 20101210
  2. DIAZEPAM [Concomitant]
     Dosage: UNK
  3. HEPARIN [Concomitant]
     Dosage: UNK
  4. PREDNISONE [Concomitant]
     Dosage: UNK
  5. SEVELAMER [Concomitant]
     Dosage: UNK
  6. MORPHINE [Concomitant]
     Dosage: UNK
  7. METRONIDAZOLE [Concomitant]
     Dosage: UNK
  8. LANSOPRAZOLE [Concomitant]
     Dosage: UNK

REACTIONS (1)
  - PYREXIA [None]
